FAERS Safety Report 13001604 (Version 1)
Quarter: 2016Q4

REPORT INFORMATION
  Report Type: Spontaneous
  Country: US (occurrence: US)
  Receive Date: 20161205
  Receipt Date: 20161205
  Transmission Date: 20170207
  Serious: Yes (Other)
  Sender: FDA-Public Use
  Company Number: None

PATIENT
  Sex: Female

DRUGS (9)
  1. APAP/CODEINE [Concomitant]
     Active Substance: ACETAMINOPHEN\CODEINE PHOSPHATE
  2. CLOPIDOGREL [Concomitant]
     Active Substance: CLOPIDOGREL BISULFATE
  3. LORAZEPAM. [Concomitant]
     Active Substance: LORAZEPAM
  4. IMATINIB 400MG APOTEX [Suspect]
     Active Substance: IMATINIB MESYLATE
     Indication: HYPERTENSION
     Route: 048
     Dates: start: 20161019
  5. ROSUVASTATIN. [Concomitant]
     Active Substance: ROSUVASTATIN
  6. PREDNISONE. [Concomitant]
     Active Substance: PREDNISONE
  7. TRIMETHOPRIM. [Concomitant]
     Active Substance: TRIMETHOPRIM
  8. LAMOTRIGINE. [Concomitant]
     Active Substance: LAMOTRIGINE
  9. ONDANSERTON [Concomitant]

REACTIONS (2)
  - Migraine [None]
  - Cerebrovascular accident [None]

NARRATIVE: CASE EVENT DATE: 2016
